FAERS Safety Report 7974556-6 (Version None)
Quarter: 2011Q4

REPORT INFORMATION
  Report Type: 
  Country: None (occurrence: None)
  Receive Date: 20111213
  Receipt Date: 20111201
  Transmission Date: 20120403
  Serious: Yes (Other)
  Sender: FDA-Public Use
  Company Number: US-BAYER-2011-089499

PATIENT
  Age: 18 Year
  Sex: Female
  Weight: 61 kg

DRUGS (5)
  1. YAZ [Suspect]
     Indication: ADRENOGENITAL SYNDROME
     Dosage: UNK
     Dates: start: 20051101, end: 20061101
  2. ALDACTONE [Concomitant]
  3. IBUPROFEN (ADVIL) [Concomitant]
  4. AZITHROMYCIN [Concomitant]
     Dosage: 250 MG, UNK
     Dates: start: 20060922
  5. HYDROCORTISONE [Concomitant]
     Dosage: UNK
     Dates: start: 20050101

REACTIONS (4)
  - PULMONARY EMBOLISM [None]
  - DYSPNOEA [None]
  - INJURY [None]
  - PAIN [None]
